FAERS Safety Report 21125760 (Version 1)
Quarter: 2022Q3

REPORT INFORMATION
  Report Type: Spontaneous
  Country: IE (occurrence: IE)
  Receive Date: 20220725
  Receipt Date: 20220725
  Transmission Date: 20221027
  Serious: Yes (Life-Threatening, Hospitalization)
  Sender: FDA-Public Use
  Company Number: IE-MYLANLABS-2022M1080490

PATIENT
  Age: 43 Year
  Sex: Male

DRUGS (7)
  1. EPINEPHRINE [Suspect]
     Active Substance: EPINEPHRINE
     Indication: Ventricular fibrillation
     Dosage: ADMINISTERED BOLUS
     Route: 065
  2. EPINEPHRINE [Suspect]
     Active Substance: EPINEPHRINE
     Dosage: ADMINISTERED ADDITIONAL INFUSIONS.
     Route: 041
  3. AMIODARONE [Suspect]
     Active Substance: AMIODARONE
     Indication: Ventricular fibrillation
     Dosage: ADMINISTERED BOLUS
     Route: 065
  4. AMIODARONE [Suspect]
     Active Substance: AMIODARONE
     Dosage: UNK (INFUSION)
     Route: 041
  5. AMIODARONE [Suspect]
     Active Substance: AMIODARONE
     Dosage: UNK (INFUSION), AMIODARONE INFUSION WAS INCREASED
     Route: 041
  6. TICAGRELOR [Concomitant]
     Active Substance: TICAGRELOR
     Indication: Acute myocardial infarction
     Dosage: ADMINISTERED LOADING DOSE.
     Route: 065
  7. ASPIRIN [Concomitant]
     Active Substance: ASPIRIN
     Indication: Acute myocardial infarction
     Dosage: ADMINISTERED LOADING DOSE.
     Route: 065

REACTIONS (1)
  - Drug ineffective [Unknown]
